FAERS Safety Report 7287532-6 (Version None)
Quarter: 2011Q1

REPORT INFORMATION
  Report Type: 
  Country: None (occurrence: None)
  Receive Date: 20110211
  Receipt Date: 20110201
  Transmission Date: 20110831
  Serious: Yes (Hospitalization)
  Sender: FDA-Public Use
  Company Number: JP-NOVOPROD-318291

PATIENT
  Age: 57 Year
  Sex: Male

DRUGS (8)
  1. NOVORAPID 30 MIX CHU [Suspect]
     Indication: TYPE 2 DIABETES MELLITUS
     Dosage: UNK
  2. CORTICOSTEROIDS, OTHER COMBINATIONS [Suspect]
     Indication: PRODUCT USED FOR UNKNOWN INDICATION
     Dosage: PULSE THERAPY
     Dates: start: 20090901
  3. CORTICOSTEROIDS, OTHER COMBINATIONS [Suspect]
     Dosage: UNK
     Dates: start: 20100201
  4. NOVORAPID CHU PENFILL [Suspect]
     Dosage: UNK
     Route: 058
     Dates: start: 20100201
  5. NOVOLIN N [Suspect]
     Dosage: UNK
     Dates: start: 20100201
  6. SULFONAMIDES, UREA DERIVATIVES [Concomitant]
     Indication: TYPE 2 DIABETES MELLITUS
  7. NOVORAPID CHU PENFILL [Suspect]
     Indication: TYPE 2 DIABETES MELLITUS
     Dosage: UNK
     Route: 058
     Dates: start: 20090901, end: 20091001
  8. NOVOLIN N [Suspect]
     Indication: TYPE 2 DIABETES MELLITUS
     Dosage: UNK
     Dates: start: 20090901

REACTIONS (1)
  - TYPE 1 DIABETES MELLITUS [None]
